FAERS Safety Report 9476989 (Version 1)
Quarter: 2013Q3

REPORT INFORMATION
  Report Type: Spontaneous
  Country: US (occurrence: US)
  Receive Date: 20130826
  Receipt Date: 20130826
  Transmission Date: 20140515
  Serious: No
  Sender: FDA-Public Use
  Company Number: US-BAXTER-2013BAX014107

PATIENT
  Sex: 0

DRUGS (9)
  1. 15% CLINISOL? - SULFITE-FREE (AMINO ACID) INJECTION [Suspect]
     Indication: PARENTERAL NUTRITION
     Route: 042
  2. DEXTROSE [Suspect]
     Indication: PARENTERAL NUTRITION
     Route: 042
  3. MAGNESIUM SULFATE [Suspect]
     Indication: PARENTERAL NUTRITION
     Route: 042
  4. INFUVITE ADULT [Suspect]
     Indication: PARENTERAL NUTRITION
     Route: 042
  5. MTE-4 CONCENTRATE [Suspect]
     Indication: PARENTERAL NUTRITION
     Route: 042
  6. FOLIC ACID [Suspect]
     Indication: PARENTERAL NUTRITION
     Route: 042
  7. ASCORBIC ACID [Suspect]
     Indication: PARENTERAL NUTRITION
     Route: 042
  8. POTASSIUM ACETATE [Suspect]
     Indication: PARENTERAL NUTRITION
     Route: 042
  9. INSULIN [Suspect]
     Indication: PARENTERAL NUTRITION
     Route: 042

REACTIONS (2)
  - Product compounding quality issue [Unknown]
  - Intercepted medication error [Recovered/Resolved]
